FAERS Safety Report 7896893-6 (Version None)
Quarter: 2011Q4

REPORT INFORMATION
  Report Type: 
  Country: None (occurrence: None)
  Receive Date: 20111107
  Receipt Date: 20111025
  Transmission Date: 20120403
  Serious: Yes (Other)
  Sender: FDA-Public Use
  Company Number: US-BAYER-2011-104155

PATIENT
  Age: 2 Year
  Sex: Male

DRUGS (2)
  1. KOGENATE FS [Suspect]
     Indication: IMMUNE TOLERANCE INDUCTION
  2. KOGENATE FS [Suspect]
     Indication: FACTOR VIII DEFICIENCY

REACTIONS (1)
  - ANTI FACTOR VIII ANTIBODY POSITIVE [None]
